FAERS Safety Report 12902462 (Version 1)
Quarter: 2016Q4

REPORT INFORMATION
  Report Type: Spontaneous
  Country: US (occurrence: US)
  Receive Date: 20161031
  Receipt Date: 20161031
  Transmission Date: 20170207
  Serious: No
  Sender: FDA-Public Use
  Company Number: None

PATIENT
  Age: 40 Year
  Sex: Male
  Weight: 72 kg

DRUGS (1)
  1. AXIRON [Suspect]
     Active Substance: TESTOSTERONE
     Indication: BLOOD TESTOSTERONE ABNORMAL
     Dosage: ?          QUANTITY:2 SWIPES;OTHER ROUTE:ARMPIT?
     Dates: start: 20161015, end: 20161031

REACTIONS (2)
  - Depression [None]
  - Major depression [None]

NARRATIVE: CASE EVENT DATE: 20161031
